FAERS Safety Report 8249508-1 (Version None)
Quarter: 2012Q1

REPORT INFORMATION
  Report Type: 
  Country: None (occurrence: None)
  Receive Date: 20120328
  Receipt Date: 20120319
  Transmission Date: 20120608
  Serious: Yes (Other)
  Sender: FDA-Public Use
  Company Number: FK201200823

PATIENT
  Age: 48 Year
  Sex: Female

DRUGS (7)
  1. GENTAMICIN [Suspect]
     Indication: INFECTION
  2. ASPIRIN [Concomitant]
  3. WARFARIN (WARFARRIN) [Concomitant]
  4. CEFTRIAXONE [Suspect]
     Indication: INFECTION
  5. METOPROLOL SUCCINATE [Concomitant]
  6. VANCOMYCIN [Suspect]
     Indication: INFECTION
  7. RIFAMPICIN [Suspect]
     Indication: INFECTION

REACTIONS (3)
  - RENAL FAILURE ACUTE [None]
  - DIALYSIS [None]
  - TOXICITY TO VARIOUS AGENTS [None]
